FAERS Safety Report 5033467-9 (Version None)
Quarter: 2006Q2

REPORT INFORMATION
  Report Type: 
  Country: None (occurrence: None)
  Receive Date: 20060518
  Receipt Date: 20060118
  Transmission Date: 20061013
  Serious: Yes (Other)
  Sender: FDA-Public Use
  Company Number: 2006000072

PATIENT
  Age: 33 Year
  Sex: Female
  Weight: 59.8748 kg

DRUGS (3)
  1. DEPO-PROVERA [Suspect]
     Indication: ILL-DEFINED DISORDER
     Dosage: SEE IMAGE
     Route: 030
     Dates: start: 19991217, end: 19991217
  2. DEPO-PROVERA [Suspect]
     Indication: ILL-DEFINED DISORDER
     Dosage: SEE IMAGE
     Route: 030
     Dates: start: 20050824, end: 20050824
  3. CALCIUM (CALCIUM) [Concomitant]

REACTIONS (4)
  - ABDOMINAL PAIN [None]
  - AMENORRHOEA [None]
  - OSTEOPENIA [None]
  - WEIGHT INCREASED [None]
